FAERS Safety Report 14982712 (Version 1)
Quarter: 2018Q2

REPORT INFORMATION
  Report Type: Spontaneous
  Country: US (occurrence: US)
  Receive Date: 20180607
  Receipt Date: 20180607
  Transmission Date: 20180711
  Serious: Yes (Other)
  Sender: FDA-Public Use
  Company Number: US-SA-2018SA110204

PATIENT
  Age: 47 Year
  Sex: Male
  Weight: 97 kg

DRUGS (5)
  1. PRAVASTATIN. [Concomitant]
     Active Substance: PRAVASTATIN
     Dosage: 20 MG, QD
  2. AUBAGIO [Suspect]
     Active Substance: TERIFLUNOMIDE
     Indication: MULTIPLE SCLEROSIS
     Dosage: 14 MG,QD
     Route: 048
     Dates: start: 20180315, end: 20180413
  3. HYDROCHLOROTHIAZIDE. [Concomitant]
     Active Substance: HYDROCHLOROTHIAZIDE
     Dosage: 25 MG, QD
     Route: 048
  4. DIAZEPAM. [Concomitant]
     Active Substance: DIAZEPAM
     Dosage: 5 MG, BID
     Route: 048
  5. VERAPAMIL [Concomitant]
     Active Substance: VERAPAMIL HYDROCHLORIDE
     Dosage: 240 MG, QD
     Route: 048

REACTIONS (19)
  - Erythema [Recovering/Resolving]
  - Gait disturbance [Unknown]
  - Swelling [Unknown]
  - Dizziness [Unknown]
  - Dry skin [Recovered/Resolved]
  - Vomiting [Unknown]
  - Skin fissures [Recovered/Resolved]
  - Hypersensitivity [Recovering/Resolving]
  - Rash [Recovered/Resolved]
  - Nausea [Unknown]
  - Pruritus [Recovered/Resolved]
  - Muscular weakness [Unknown]
  - Condition aggravated [Unknown]
  - Hypoaesthesia [Unknown]
  - Multiple sclerosis [Unknown]
  - Condition aggravated [Unknown]
  - Fatigue [Unknown]
  - Dizziness [Unknown]
  - Irritability [Unknown]

NARRATIVE: CASE EVENT DATE: 201803
